FAERS Safety Report 7020408-8 (Version None)
Quarter: 2010Q3

REPORT INFORMATION
  Report Type: 
  Country: None (occurrence: None)
  Receive Date: 20100927
  Receipt Date: 20100913
  Transmission Date: 20110219
  Serious: Yes (Other)
  Sender: FDA-Public Use
  Company Number: DE-1183354

PATIENT
  Sex: Female

DRUGS (1)
  1. MAXITROL [Suspect]
     Indication: CONJUNCTIVITIS
     Dosage: 5 GTTS QD X 1 WK OPHTHALMIC; 1 GTT QD, QID OPHTHALMIC
     Route: 047

REACTIONS (4)
  - CONJUNCTIVITIS [None]
  - DISEASE PROGRESSION [None]
  - EYE PAIN [None]
  - VISUAL ACUITY REDUCED [None]
